FAERS Safety Report 9263962 (Version 1)
Quarter: 2013Q2

REPORT INFORMATION
  Report Type: Spontaneous
  Country: DK (occurrence: DK)
  Receive Date: 20130430
  Receipt Date: 20130430
  Transmission Date: 20140414
  Serious: Yes (Hospitalization)
  Sender: FDA-Public Use
  Company Number: DK-BRISTOL-MYERS SQUIBB COMPANY-18817304

PATIENT
  Age: 65 Year
  Sex: Female

DRUGS (1)
  1. ABILIFY TABS [Suspect]
     Indication: DEPRESSION
     Dates: start: 20041208

REACTIONS (2)
  - Periodontitis [Not Recovered/Not Resolved]
  - Dry mouth [Not Recovered/Not Resolved]
